FAERS Safety Report 9582292 (Version 1)
Quarter: 2013Q4

REPORT INFORMATION
  Report Type: Spontaneous
  Country: US (occurrence: US)
  Receive Date: 20131002
  Receipt Date: 20131002
  Transmission Date: 20140711
  Serious: No
  Sender: FDA-Public Use
  Company Number: US-AMGEN-USASP2013039309

PATIENT
  Age: 54 Year
  Sex: Male

DRUGS (3)
  1. ENBREL [Suspect]
     Indication: RHEUMATOID ARTHRITIS
     Dosage: 50 MG, QWK
     Dates: start: 20110101, end: 201303
  2. HUMIRA [Concomitant]
     Dosage: UNK
     Dates: start: 201304, end: 201305
  3. CIMZIA [Concomitant]
     Dosage: UNK
     Dates: start: 201304, end: 201305

REACTIONS (4)
  - Pain in extremity [Not Recovered/Not Resolved]
  - Arthralgia [Not Recovered/Not Resolved]
  - Joint stiffness [Not Recovered/Not Resolved]
  - Arthritis [Not Recovered/Not Resolved]
